FAERS Safety Report 4345700-7 (Version None)
Quarter: 2004Q2

REPORT INFORMATION
  Report Type: 
  Country: None (occurrence: None)
  Receive Date: 20040421
  Receipt Date: 20040412
  Transmission Date: 20050107
  Serious: Yes (Hospitalization)
  Sender: FDA-Public Use
  Company Number: EM2004-0202

PATIENT
  Age: 65 Year
  Sex: Male

DRUGS (4)
  1. PROLEUKIN [Suspect]
     Indication: NEOPLASM MALIGNANT
     Dosage: 19.8 MIU, SUBCUTAN
     Route: 058
     Dates: start: 20030523, end: 20030603
  2. INTRON A [Suspect]
     Indication: NEOPLASM MALIGNANT
     Dosage: 11.7 , SUBCUTANEOUS
     Route: 058
     Dates: start: 20030523, end: 20030603
  3. FLUOROURACIL [Suspect]
     Indication: NEOPLASM MALIGNANT
     Dosage: INTRAVENOUS
     Route: 042
     Dates: start: 20030523
  4. ACETAMINOPHEN [Concomitant]

REACTIONS (8)
  - ABNORMAL BEHAVIOUR [None]
  - BLOOD CREATININE INCREASED [None]
  - BODY TEMPERATURE INCREASED [None]
  - CHEST PAIN [None]
  - DIARRHOEA [None]
  - MALAISE [None]
  - PSYCHOTIC DISORDER [None]
  - SOCIAL PROBLEM [None]
